FAERS Safety Report 24595140 (Version 1)
Quarter: 2024Q4

REPORT INFORMATION
  Report Type: Spontaneous
  Country: US (occurrence: US)
  Receive Date: 20241108
  Receipt Date: 20241108
  Transmission Date: 20250114
  Serious: No
  Sender: THERATECHNOLOGIES
  Company Number: US-THERATECHNOLOGIES INC.-2024-THE-TES-000412

PATIENT

DRUGS (1)
  1. EGRIFTA SV [Suspect]
     Active Substance: TESAMORELIN ACETATE
     Indication: Lipodystrophy acquired
     Dosage: 1.4 MG, QD ,0.35 ML OF THE RECONSTITUTED SOLUTION INJECTED SUBCUTANEOUSLY, ONCE DAILY
     Route: 058
     Dates: start: 20241003

REACTIONS (7)
  - Injection site bruising [Recovering/Resolving]
  - Heart rate increased [Recovering/Resolving]
  - Incorrect dose administered [Recovering/Resolving]
  - Mood altered [Unknown]
  - Agitation [Unknown]
  - Dizziness [Unknown]
  - Palpitations [Unknown]

NARRATIVE: CASE EVENT DATE: 20241001
